FAERS Safety Report 7169741-X (Version None)
Quarter: 2010Q4

REPORT INFORMATION
  Report Type: 
  Country: None (occurrence: None)
  Receive Date: 20101217
  Receipt Date: 20091104
  Transmission Date: 20110411
  Serious: No
  Sender: FDA-Public Use
  Company Number: A0829335A

PATIENT
  Age: 44 Year
  Sex: Female
  Weight: 77 kg

DRUGS (2)
  1. SORIATANE [Suspect]
     Indication: PSORIASIS
     Dosage: 25MG PER DAY
     Route: 048
     Dates: start: 20091030, end: 20091103
  2. PRAVACHOL [Concomitant]
     Route: 048

REACTIONS (4)
  - BURNING SENSATION [None]
  - DRY SKIN [None]
  - ERYTHEMA [None]
  - PRURITUS [None]
